FAERS Safety Report 4355230-4 (Version None)
Quarter: 2004Q2

REPORT INFORMATION
  Report Type: 
  Country: None (occurrence: None)
  Receive Date: 20040505
  Receipt Date: 20040426
  Transmission Date: 20050107
  Serious: Yes (Hospitalization)
  Sender: FDA-Public Use
  Company Number: 2004CG00791

PATIENT
  Age: 82 Year
  Sex: Female

DRUGS (9)
  1. MOPRAL [Suspect]
     Dosage: 20 UG DAILY PO
     Route: 048
     Dates: start: 20030101, end: 20040206
  2. VOLTAREN [Suspect]
     Dosage: 150 MG DAILY PO
     Route: 048
     Dates: end: 20040206
  3. EUPRESSYL [Suspect]
     Dosage: 60 MG DAILY PO
     Route: 048
     Dates: start: 19980101
  4. FENOFIBRATE [Suspect]
     Dates: end: 20040206
  5. ZALDIAR [Suspect]
     Dosage: 6 DF DAILY PO
     Route: 048
     Dates: start: 20030501, end: 20040127
  6. NOROXIN [Suspect]
     Dosage: 400 MG BIWK PO
     Route: 048
     Dates: start: 19990101, end: 20031101
  7. SPIRONOLACTONE [Suspect]
     Dates: start: 19990101, end: 20031101
  8. SERESTA [Suspect]
  9. LAMALINE [Suspect]
     Dates: end: 20040206

REACTIONS (2)
  - DRUG INEFFECTIVE [None]
  - TOXIC SKIN ERUPTION [None]
